FAERS Safety Report 25487935 (Version 1)
Quarter: 2025Q2

REPORT INFORMATION
  Report Type: Spontaneous
  Country: US (occurrence: US)
  Receive Date: 20250627
  Receipt Date: 20250627
  Transmission Date: 20250716
  Serious: No
  Sender: PFIZER
  Company Number: US-PFIZER INC-202500129054

PATIENT
  Sex: Male

DRUGS (4)
  1. BRAFTOVI [Suspect]
     Active Substance: ENCORAFENIB
     Indication: Small cell lung cancer
     Dates: start: 202503
  2. MEKTOVI [Suspect]
     Active Substance: BINIMETINIB
     Indication: Small cell lung cancer
     Dates: start: 202503
  3. METOPROLOL TARTRATE [Suspect]
     Active Substance: METOPROLOL TARTRATE
  4. LOSARTAN [Concomitant]
     Active Substance: LOSARTAN
     Indication: Blood pressure measurement

REACTIONS (3)
  - Speech disorder [Unknown]
  - Cerebral disorder [Unknown]
  - Mental disorder [Unknown]
